FAERS Safety Report 13838433 (Version 1)
Quarter: 2017Q3

REPORT INFORMATION
  Report Type: Other
  Country: SI (occurrence: SI)
  Receive Date: 20170807
  Receipt Date: 20170807
  Transmission Date: 20171127
  Serious: Yes (Other)
  Sender: FDA-Public Use
  Company Number: SI-VELOXIS PHARMACEUTICALS-2024253

PATIENT
  Age: 50 Year
  Sex: Male

DRUGS (3)
  1. MYCOPHENOLATE MOFETIL. [Suspect]
     Active Substance: MYCOPHENOLATE MOFETIL
  2. METHYLPREDNISOLONE. [Suspect]
     Active Substance: METHYLPREDNISOLONE
  3. ENVARSUS XR [Suspect]
     Active Substance: TACROLIMUS
     Indication: RENAL TRANSPLANT

REACTIONS (6)
  - Delayed graft function [Unknown]
  - Polyomavirus-associated nephropathy [Unknown]
  - Lymphocele [Unknown]
  - BK virus infection [Recovering/Resolving]
  - Renal tubular injury [Unknown]
  - Kidney transplant rejection [Unknown]
